FAERS Safety Report 8534600-4 (Version None)
Quarter: 2012Q3

REPORT INFORMATION
  Report Type: 
  Country: None (occurrence: None)
  Receive Date: 20120724
  Receipt Date: 20120712
  Transmission Date: 20120928
  Serious: No
  Sender: FDA-Public Use
  Company Number: US-ASTRAZENECA-2011SE49893

PATIENT
  Age: 61 Year
  Sex: Female

DRUGS (25)
  1. SEROQUEL [Suspect]
     Route: 048
     Dates: start: 20110814
  2. SEROQUEL [Suspect]
     Route: 048
  3. SEROQUEL [Suspect]
     Route: 048
  4. SEROQUEL [Suspect]
     Route: 048
     Dates: start: 20110814
  5. SEROQUEL [Suspect]
     Route: 048
  6. SEROQUEL [Suspect]
     Route: 048
  7. METFORMIN HYDROCHLORIDE [Concomitant]
     Indication: DIABETES MELLITUS
     Dosage: DAILY
     Route: 048
  8. CLINOPRIL [Concomitant]
     Indication: HYPERTENSION
     Dosage: DAILY
     Route: 048
  9. SEROQUEL [Suspect]
     Indication: TACHYPHRENIA
     Route: 048
     Dates: end: 20110814
  10. SEROQUEL [Suspect]
     Route: 048
  11. SEROQUEL [Suspect]
     Route: 048
  12. SEROQUEL [Suspect]
     Route: 048
  13. SEROQUEL [Suspect]
     Route: 048
  14. SEROQUEL [Suspect]
     Indication: SLEEP DISORDER
     Route: 048
     Dates: end: 20110814
  15. GABAPENTIN [Concomitant]
     Indication: FIBROMYALGIA
     Dosage: DAILY
     Route: 048
  16. SEROQUEL [Suspect]
     Indication: DEPRESSION
     Route: 048
     Dates: end: 20110814
  17. SEROQUEL [Suspect]
     Route: 048
  18. SEROQUEL [Suspect]
     Route: 048
  19. SEROQUEL [Suspect]
     Indication: INSOMNIA
     Route: 048
     Dates: end: 20110814
  20. SEROQUEL [Suspect]
     Route: 048
     Dates: start: 20110814
  21. SEROQUEL [Suspect]
     Route: 048
     Dates: start: 20110814
  22. SEROQUEL [Suspect]
     Route: 048
  23. SEROQUEL [Suspect]
     Route: 048
  24. CYMBALTA [Concomitant]
     Indication: DEPRESSION
     Dosage: DAILY
     Route: 048
  25. SIMVASTATIN [Concomitant]
     Indication: HYPERCHOLESTEROLAEMIA
     Dosage: DAILY
     Route: 048

REACTIONS (6)
  - TACHYPHRENIA [None]
  - INSOMNIA [None]
  - FALL [None]
  - DRUG EFFECT DECREASED [None]
  - HEAD INJURY [None]
  - DRUG DOSE OMISSION [None]
